FAERS Safety Report 13220861 (Version 1)
Quarter: 2017Q1

REPORT INFORMATION
  Report Type: Other
  Country: US (occurrence: US)
  Receive Date: 20170211
  Receipt Date: 20170211
  Transmission Date: 20170428
  Serious: No
  Sender: FDA-Public Use
  Company Number: US-ACORDA-ACO_129654_2016

PATIENT
  Age: 49 Year
  Sex: Female

DRUGS (1)
  1. AMPYRA [Suspect]
     Active Substance: DALFAMPRIDINE
     Indication: PRODUCT USED FOR UNKNOWN INDICATION
     Route: 065

REACTIONS (10)
  - Muscular weakness [Unknown]
  - Pain in extremity [Unknown]
  - Muscle tightness [Unknown]
  - Fall [Unknown]
  - Muscle spasms [Unknown]
  - Micturition urgency [Unknown]
  - Hemiparesis [Unknown]
  - Peripheral swelling [Unknown]
  - Urinary hesitation [Unknown]
  - Constipation [Unknown]
